FAERS Safety Report 4353202-7 (Version None)
Quarter: 2004Q2

REPORT INFORMATION
  Report Type: 
  Country: None (occurrence: None)
  Receive Date: 20040429
  Receipt Date: 20040305
  Transmission Date: 20050107
  Serious: Yes (Hospitalization)
  Sender: FDA-Public Use
  Company Number: REL-RIR-109

PATIENT
  Age: 13 Year
  Sex: Male
  Weight: 50 kg

DRUGS (1)
  1. RYTHMOL [Suspect]
     Indication: SUICIDE ATTEMPT
     Dosage: 3 GM ONCE ORAL
     Route: 048
     Dates: start: 20011001, end: 20011001

REACTIONS (14)
  - ATRIOVENTRICULAR BLOCK FIRST DEGREE [None]
  - BUNDLE BRANCH BLOCK RIGHT [None]
  - CARDIO-RESPIRATORY ARREST [None]
  - CARDIOGENIC SHOCK [None]
  - COMA [None]
  - CONVULSION [None]
  - DRUG TOXICITY [None]
  - ELECTROCARDIOGRAM QT PROLONGED [None]
  - INTENTIONAL OVERDOSE [None]
  - LEUKOCYTOSIS [None]
  - MYOCARDIAL ISCHAEMIA [None]
  - PULSE ABSENT [None]
  - PYREXIA [None]
  - SUICIDE ATTEMPT [None]
